FAERS Safety Report 6443980-5 (Version None)
Quarter: 2009Q4

REPORT INFORMATION
  Report Type: 
  Country: None (occurrence: None)
  Receive Date: 20091117
  Receipt Date: 20091117
  Transmission Date: 20100525
  Serious: Yes (Other)
  Sender: FDA-Public Use
  Company Number: None

PATIENT
  Age: 3 Year
  Sex: Male
  Weight: 15.8759 kg

DRUGS (2)
  1. PROMETHAZINE [Suspect]
     Indication: NAUSEA
     Dosage: 1/2 SUPPOSITORY 4-6 HOURS RECTAL
     Route: 054
     Dates: start: 20091111, end: 20091111
  2. PROMETHAZINE [Suspect]
     Indication: VOMITING
     Dosage: 1/2 SUPPOSITORY 4-6 HOURS RECTAL
     Route: 054
     Dates: start: 20091111, end: 20091111

REACTIONS (4)
  - AGITATION [None]
  - CONVERSION DISORDER [None]
  - DELIRIUM [None]
  - HALLUCINATIONS, MIXED [None]
